FAERS Safety Report 21060527 (Version 1)
Quarter: 2022Q3

REPORT INFORMATION
  Report Type: Spontaneous
  Country: CN (occurrence: CN)
  Receive Date: 20220708
  Receipt Date: 20220708
  Transmission Date: 20221027
  Serious: Yes (Other)
  Sender: FDA-Public Use
  Company Number: CN-ELI_LILLY_AND_COMPANY-CN202206012023

PATIENT
  Age: 17 Year
  Sex: Male
  Weight: 63 kg

DRUGS (4)
  1. FLUOXETINE HYDROCHLORIDE [Suspect]
     Active Substance: FLUOXETINE HYDROCHLORIDE
     Indication: Depression
     Dosage: 20 MG, EACH MORNING (ONCE DAILY)
     Route: 048
     Dates: start: 20220601, end: 20220613
  2. FLUOXETINE HYDROCHLORIDE [Suspect]
     Active Substance: FLUOXETINE HYDROCHLORIDE
     Indication: Mood altered
  3. OLANZAPINE [Suspect]
     Active Substance: OLANZAPINE
     Indication: Schizotypal personality disorder
     Dosage: 5 MG, EACH EVENING (QN DAILY)
     Route: 048
     Dates: start: 20220606, end: 20220613
  4. BUPROPION HYDROCHLORIDE [Suspect]
     Active Substance: BUPROPION HYDROCHLORIDE
     Indication: Depression
     Dosage: 0.3 G, EACH MORNING (ONCE DAILY)
     Route: 048
     Dates: start: 20220606, end: 20220613

REACTIONS (7)
  - Epilepsy [Recovered/Resolved]
  - Loss of consciousness [Recovered/Resolved]
  - Fall [Recovered/Resolved]
  - Dysphoria [Recovered/Resolved]
  - Discomfort [Recovered/Resolved]
  - Balance disorder [Recovered/Resolved]
  - Heart rate irregular [Recovered/Resolved]

NARRATIVE: CASE EVENT DATE: 20220607
